FAERS Safety Report 19251487 (Version 1)
Quarter: 2021Q2

REPORT INFORMATION
  Report Type: Report from Study
  Country: None (occurrence: US)
  Receive Date: 20210513
  Receipt Date: 20210513
  Transmission Date: 20210717
  Serious: Yes (Other)
  Sender: FDA-Public Use
  Company Number: US-ABBVIE-21K-163-3732724-00

PATIENT
  Sex: Female

DRUGS (1)
  1. HUMIRA [Suspect]
     Active Substance: ADALIMUMAB
     Indication: PSORIASIS
     Route: 058

REACTIONS (8)
  - Jaundice [Unknown]
  - Anaemia [Unknown]
  - Liver disorder [Unknown]
  - Gastric ulcer [Unknown]
  - Oesophageal ulcer [Unknown]
  - Haemorrhage [Recovering/Resolving]
  - Rectal polyp [Unknown]
  - Large intestine polyp [Unknown]
